FAERS Safety Report 7804648-3 (Version None)
Quarter: 2011Q4

REPORT INFORMATION
  Report Type: 
  Country: None (occurrence: None)
  Receive Date: 20111010
  Receipt Date: 20111005
  Transmission Date: 20120403
  Serious: Yes (Hospitalization)
  Sender: FDA-Public Use
  Company Number: US-AMGEN-USASP2011051539

PATIENT
  Age: 49 Year
  Sex: Female

DRUGS (1)
  1. ENBREL [Suspect]
     Indication: RHEUMATOID ARTHRITIS
     Dosage: 25 MG, 2 TIMES/WK
     Dates: start: 20040101

REACTIONS (9)
  - DEVICE DISLOCATION [None]
  - FEMALE GENITAL TRACT FISTULA [None]
  - ESCHERICHIA INFECTION [None]
  - UTERINE LEIOMYOMA [None]
  - ARTHRITIS BACTERIAL [None]
  - INTESTINAL RESECTION [None]
  - POST PROCEDURAL COMPLICATION [None]
  - RHEUMATOID ARTHRITIS [None]
  - ADENOMYOSIS [None]
